FAERS Safety Report 9393213 (Version 1)
Quarter: 2013Q3

REPORT INFORMATION
  Report Type: Spontaneous
  Country: AU (occurrence: AU)
  Receive Date: 20130710
  Receipt Date: 20130710
  Transmission Date: 20140515
  Serious: Yes (Hospitalization, Other)
  Sender: FDA-Public Use
  Company Number: AU-MYLANLABS-2013S1014085

PATIENT
  Age: 82 Year
  Sex: Female

DRUGS (5)
  1. ENDEP [Suspect]
     Indication: NEURALGIA
     Route: 048
     Dates: start: 20130620, end: 20130620
  2. MONOPLUS [Concomitant]
     Indication: BLOOD PRESSURE
  3. SOLIAN [Concomitant]
  4. ACIMAX [Concomitant]
  5. ASPIRIN [Concomitant]
     Indication: CEREBROVASCULAR ACCIDENT

REACTIONS (3)
  - Memory impairment [Recovering/Resolving]
  - Confusional state [Recovering/Resolving]
  - Speech disorder [Recovering/Resolving]
